FAERS Safety Report 11871041 (Version 1)
Quarter: 2015Q4

REPORT INFORMATION
  Report Type: Spontaneous
  Country: US (occurrence: US)
  Receive Date: 20151228
  Receipt Date: 20151228
  Transmission Date: 20160305
  Serious: No
  Sender: FDA-Public Use
  Company Number: US-BAYER-2015-494090

PATIENT
  Age: 82 Year
  Sex: Female
  Weight: 65.76 kg

DRUGS (2)
  1. ALEVE [Suspect]
     Active Substance: NAPROXEN SODIUM
     Dosage: 1 DF, ONCE
     Route: 048
     Dates: start: 2014, end: 2014
  2. BAYER GENUINE ASPIRIN [Suspect]
     Active Substance: ASPIRIN
     Dosage: UNK

REACTIONS (7)
  - Wheezing [Recovered/Resolved]
  - Accident [None]
  - Asthenia [None]
  - Dyspnoea [Recovered/Resolved]
  - Drug ineffective [None]
  - Therapeutic response unexpected [None]
  - Drug hypersensitivity [None]

NARRATIVE: CASE EVENT DATE: 2014
